FAERS Safety Report 17599560 (Version 1)
Quarter: 2020Q1

REPORT INFORMATION
  Report Type: Spontaneous
  Country: GB (occurrence: GB)
  Receive Date: 20200330
  Receipt Date: 20200330
  Transmission Date: 20200409
  Serious: Yes (Other)
  Sender: FDA-Public Use
  Company Number: GB-MYLANLABS-2020M1032278

PATIENT
  Age: 32 Year
  Sex: Female
  Weight: 59 kg

DRUGS (17)
  1. HEDRIN                             /00159501/ [Concomitant]
     Dosage: USE AS DIRECTED
     Dates: start: 20200214
  2. DOXYCYCLINE. [Concomitant]
     Active Substance: DOXYCYCLINE
     Dosage: ACUTE EXACERBATION OF COPD - ALTERNATIVE OPTION...
     Dates: start: 20200211
  3. SPIRIVA [Concomitant]
     Active Substance: TIOTROPIUM BROMIDE MONOHYDRATE
     Dosage: 2 DOSAGE FORM, QD (PUFFS)
     Dates: start: 20190508
  4. PREDNISOLONE. [Concomitant]
     Active Substance: PREDNISOLONE
     Dosage: 6 DOSAGE FORM, QD (FOR 7 DAYS)
     Dates: start: 20200211, end: 20200212
  5. FOSTAIR [Concomitant]
     Active Substance: BECLOMETHASONE\FORMOTEROL
     Indication: CHRONIC OBSTRUCTIVE PULMONARY DISEASE
     Dosage: 4 DOSAGE FORM, QD (PUFFS)
     Dates: start: 20190508
  6. OMEPRAZOLE. [Concomitant]
     Active Substance: OMEPRAZOLE
     Dosage: ON EMPTY STOMACH
     Dates: start: 20190508
  7. NEXPLANON [Concomitant]
     Active Substance: ETONOGESTREL
     Dosage: USE AS DIRECTED
     Dates: start: 20200127, end: 20200128
  8. FLUOXETINE [Suspect]
     Active Substance: FLUOXETINE HYDROCHLORIDE
     Indication: PRODUCT USED FOR UNKNOWN INDICATION
     Dosage: UNK
     Dates: start: 20200211
  9. SALBUTAMOL [Concomitant]
     Active Substance: ALBUTEROL
     Dosage: 2 DOSAGE FORM, Q4H (AS NECESSARY)
     Route: 055
     Dates: start: 20190508
  10. KETOCONAZOLE. [Concomitant]
     Active Substance: KETOCONAZOLE
     Dosage: USE AS DIRECTED
     Dates: start: 20200211
  11. BENZOYL PEROXIDE. [Concomitant]
     Active Substance: BENZOYL PEROXIDE
     Dosage: 1 DOSAGE FORM, QD (APPLY AT NIGHT)
     Dates: start: 20200211, end: 20200212
  12. CASSIA ACUTIFOLIA [Concomitant]
     Dosage: 2 DOSAGE FORM, QD (NIGHT)
     Dates: start: 20190508
  13. ZEROCREAM [Concomitant]
     Dosage: APPLY TO WHOLE BODY
     Dates: start: 20200211
  14. MIRTAZAPINE. [Concomitant]
     Active Substance: MIRTAZAPINE
     Dosage: USE AS DIRECTED
     Dates: start: 20191125
  15. MACROGOL [Concomitant]
     Active Substance: POLYETHYLENE GLYCOLS
     Dosage: 2-4 SACHETS DAILY CAN USE 8 PER DAY FOR SEVER I...
     Dates: start: 20190508
  16. GLYCEROL [Concomitant]
     Active Substance: GLYCERIN
     Dosage: 1 DOSAGE FORM, PRN
     Route: 054
     Dates: start: 20190508
  17. THIAMINE. [Concomitant]
     Active Substance: THIAMINE
     Dosage: 3 DOSAGE FORM, QD
     Dates: start: 20191125

REACTIONS (1)
  - Dystonia [Recovered/Resolved]

NARRATIVE: CASE EVENT DATE: 20200214
